FAERS Safety Report 19485364 (Version 1)
Quarter: 2021Q3

REPORT INFORMATION
  Report Type: Spontaneous
  Country: US (occurrence: US)
  Receive Date: 20210701
  Receipt Date: 20210701
  Transmission Date: 20211014
  Serious: No
  Sender: FDA-Public Use
  Company Number: None

PATIENT
  Age: 72 Year
  Sex: Male

DRUGS (1)
  1. AMITRIPTYLINE (AMITRIPTYLINE HCL 25MG TAB) [Suspect]
     Active Substance: AMITRIPTYLINE HYDROCHLORIDE
     Indication: DEPRESSION
     Route: 048
     Dates: start: 20201130, end: 20210421

REACTIONS (4)
  - Delirium [None]
  - Confusional state [None]
  - Tooth disorder [None]
  - Memory impairment [None]

NARRATIVE: CASE EVENT DATE: 20210421
